FAERS Safety Report 16082946 (Version 1)
Quarter: 2019Q1

REPORT INFORMATION
  Report Type: Report from Study
  Country: HN (occurrence: HN)
  Receive Date: 20190318
  Receipt Date: 20190318
  Transmission Date: 20190418
  Serious: Yes (Other)
  Sender: FDA-Public Use
  Company Number: HN-SA-2019SA069194

PATIENT
  Age: 65 Year
  Sex: Female

DRUGS (1)
  1. INSULIN GLARGINE [Suspect]
     Active Substance: INSULIN GLARGINE
     Indication: DIABETES MELLITUS
     Dosage: 50 IU,(30IU IN THE MORNING AND 20IU IN THEW NIGHT) BID
     Route: 058
     Dates: start: 201503

REACTIONS (2)
  - Glaucoma surgery [Unknown]
  - Off label use [Unknown]

NARRATIVE: CASE EVENT DATE: 201807
